FAERS Safety Report 5586963-X (Version None)
Quarter: 2008Q1

REPORT INFORMATION
  Report Type: 
  Country: None (occurrence: None)
  Receive Date: 20080110
  Receipt Date: 20080104
  Transmission Date: 20080703
  Serious: Yes (Other)
  Sender: FDA-Public Use
  Company Number: US-JNJFOC-20080101875

PATIENT
  Age: 63 Year
  Sex: Female

DRUGS (1)
  1. DOXIL [Suspect]
     Indication: BREAST CANCER METASTATIC
     Route: 050

REACTIONS (1)
  - NEUROPATHY PERIPHERAL [None]
